FAERS Safety Report 7075655-6 (Version None)
Quarter: 2010Q4

REPORT INFORMATION
  Report Type: 
  Country: None (occurrence: None)
  Receive Date: 20101030
  Receipt Date: 20101015
  Transmission Date: 20110411
  Serious: No
  Sender: FDA-Public Use
  Company Number: US-WYE-H18187710

PATIENT
  Sex: Female
  Weight: 63.56 kg

DRUGS (8)
  1. PRISTIQ [Suspect]
     Indication: DEPRESSION
     Route: 048
     Dates: start: 20100901
  2. PREDNISONE [Concomitant]
  3. TRAZODONE [Concomitant]
  4. LORAZEPAM [Concomitant]
  5. CYCLOBENZAPRINE [Concomitant]
  6. DIOVAN HCT [Concomitant]
  7. CIMZIA [Concomitant]
  8. NEXIUM [Concomitant]

REACTIONS (2)
  - DRUG INEFFECTIVE [None]
  - MEDICATION RESIDUE [None]
